FAERS Safety Report 6673019-8 (Version None)
Quarter: 2010Q2

REPORT INFORMATION
  Report Type: 
  Country: None (occurrence: None)
  Receive Date: 20100408
  Receipt Date: 20100402
  Transmission Date: 20101027
  Serious: Yes (Hospitalization)
  Sender: FDA-Public Use
  Company Number: B0645580A

PATIENT
  Sex: Female

DRUGS (14)
  1. CLAMOXYL [Suspect]
     Indication: DRUG USE FOR UNKNOWN INDICATION
     Route: 048
     Dates: start: 20100129, end: 20100131
  2. NEXIUM [Suspect]
     Indication: DRUG USE FOR UNKNOWN INDICATION
     Route: 048
     Dates: start: 20100125, end: 20100322
  3. NORSET [Suspect]
     Indication: DRUG USE FOR UNKNOWN INDICATION
     Route: 048
     Dates: end: 20100319
  4. NEORAL [Suspect]
     Indication: DRUG USE FOR UNKNOWN INDICATION
     Route: 048
     Dates: end: 20100301
  5. LEXOMIL [Suspect]
     Indication: DRUG USE FOR UNKNOWN INDICATION
     Route: 048
  6. OFLOCET [Suspect]
     Indication: DRUG USE FOR UNKNOWN INDICATION
     Route: 048
     Dates: start: 20100101
  7. COZAAR [Concomitant]
     Route: 065
  8. CACIT [Concomitant]
     Route: 065
  9. LASIX [Concomitant]
     Route: 065
  10. TAHOR [Concomitant]
     Route: 065
  11. PLAVIX [Concomitant]
     Route: 065
  12. KARDEGIC [Concomitant]
     Route: 065
  13. CELECTOL [Concomitant]
     Route: 065
  14. FELODIPINE [Concomitant]
     Route: 065

REACTIONS (1)
  - COLITIS COLLAGENOUS [None]
